FAERS Safety Report 18540197 (Version 1)
Quarter: 2020Q4

REPORT INFORMATION
  Report Type: Spontaneous
  Country: FR (occurrence: FR)
  Receive Date: 20201124
  Receipt Date: 20201124
  Transmission Date: 20210114
  Serious: Yes (Other)
  Sender: FDA-Public Use
  Company Number: FR-PFIZER INC-2020458090

PATIENT
  Age: 88 Year
  Sex: Male
  Weight: 71 kg

DRUGS (1)
  1. ZOLOFT [Suspect]
     Active Substance: SERTRALINE HYDROCHLORIDE
     Indication: SUICIDE ATTEMPT
     Dosage: 25 MG, 1X/DAY
     Route: 048
     Dates: start: 20201019, end: 20201027

REACTIONS (3)
  - Pancreatitis acute [Recovering/Resolving]
  - Intentional product misuse [Unknown]
  - Suicide attempt [Unknown]

NARRATIVE: CASE EVENT DATE: 20201019
